FAERS Safety Report 10795136 (Version 1)
Quarter: 2015Q1

REPORT INFORMATION
  Report Type: Spontaneous
  Country: US (occurrence: US)
  Receive Date: 20150214
  Receipt Date: 20150214
  Transmission Date: 20150721
  Serious: No
  Sender: FDA-Public Use
  Company Number: US-GLAXOSMITHKLINE-A1076894A

PATIENT

DRUGS (1)
  1. ALLI [Suspect]
     Active Substance: ORLISTAT
     Indication: WEIGHT DECREASED
     Dates: start: 2010, end: 2014

REACTIONS (7)
  - Chromaturia [Unknown]
  - Hepatitis [Unknown]
  - Ocular icterus [Unknown]
  - Pruritus [Unknown]
  - Liver disorder [Not Recovered/Not Resolved]
  - Nausea [Unknown]
  - Faeces pale [Unknown]
